FAERS Safety Report 4608894-1 (Version None)
Quarter: 2005Q1

REPORT INFORMATION
  Report Type: 
  Country: None (occurrence: None)
  Receive Date: 20050309
  Receipt Date: 20050224
  Transmission Date: 20050727
  Serious: Yes (Death, Other)
  Sender: FDA-Public Use
  Company Number: 2005037065

PATIENT
  Sex: Female

DRUGS (3)
  1. SERLAIN (SERTRALINE) [Suspect]
     Indication: DEPRESSION
     Dosage: ORAL
     Route: 048
  2. LISINOPRIL [Concomitant]
  3. POTASSIUM CANRENOATE (POTASSIUM CANRENOATE) [Concomitant]

REACTIONS (2)
  - GASTROINTESTINAL HAEMORRHAGE [None]
  - NAUSEA [None]
